FAERS Safety Report 5350541-8 (Version None)
Quarter: 2007Q2

REPORT INFORMATION
  Report Type: 
  Country: None (occurrence: None)
  Receive Date: 20070608
  Receipt Date: 20070528
  Transmission Date: 20071010
  Serious: Yes (Life-Threatening, Other)
  Sender: FDA-Public Use
  Company Number: CA-NOVOPROD-263712

PATIENT
  Sex: Female
  Weight: 94 kg

DRUGS (17)
  1. NOVOMIX PENFILL 3 ML [Suspect]
     Indication: INSULIN-REQUIRING TYPE II DIABETES MELLITUS
     Dosage: 140 IU, QD
     Route: 030
     Dates: start: 20070423
  2. NOVOMIX PENFILL 3 ML [Suspect]
     Dosage: 40 IU, BID
     Route: 030
  3. METFORMIN HCL [Concomitant]
     Dosage: 1 G, BID
     Route: 048
     Dates: start: 20000101, end: 20070101
  4. GLYBURIDE [Concomitant]
     Dosage: 5 MG, BID
     Route: 048
     Dates: start: 20070427, end: 20070522
  5. GLYBURIDE [Concomitant]
     Dosage: 10 MG, BID
     Route: 048
     Dates: start: 20061201, end: 20070427
  6. GLYBURIDE [Concomitant]
     Dosage: 5 MG, BID
     Dates: start: 20061001, end: 20061201
  7. GEMFIBROZIL [Concomitant]
     Dosage: 600 MG, BID
     Route: 048
     Dates: start: 20061001, end: 20070101
  8. MICARDIS [Concomitant]
     Dosage: 80 MG, QD
     Route: 048
     Dates: start: 20000101, end: 20070101
  9. LIPITOR [Concomitant]
     Dosage: 10 MG, QD
     Route: 048
     Dates: start: 20000101, end: 20070101
  10. HUMULIN N [Concomitant]
     Dosage: 54+23+23+23 IU, QD
     Dates: start: 20060101, end: 20070423
  11. NOVOLOG MIX 70/30 [Concomitant]
     Dosage: 70 IU, BID
     Dates: start: 20070423, end: 20070514
  12. NOVOLOG MIX 70/30 [Concomitant]
     Dosage: 50 IU, BID
     Dates: start: 20070515, end: 20070522
  13. NOVOLOG MIX 70/30 [Concomitant]
     Dosage: 70 IU, BID
     Dates: start: 20070523, end: 20070101
  14. ACTOSE [Concomitant]
     Dosage: 30 MG, QD
     Dates: start: 20061201, end: 20070101
  15. ACTOSE [Concomitant]
     Dosage: 30 MG, QD
     Dates: start: 20070522, end: 20070101
  16. GLUCAGON [Concomitant]
     Dosage: 1 ML, QD
     Route: 058
     Dates: start: 20070514, end: 20070101
  17. HUMALOG [Concomitant]
     Dosage: 26+26+26 IU, QD
     Dates: start: 20060101, end: 20070423

REACTIONS (2)
  - HYPOGLYCAEMIA [None]
  - HYPOTENSION [None]
